FAERS Safety Report 5425145-9 (Version None)
Quarter: 2007Q3

REPORT INFORMATION
  Report Type: 
  Country: None (occurrence: None)
  Receive Date: 20070824
  Receipt Date: 20070817
  Transmission Date: 20080115
  Serious: Yes (Other)
  Sender: FDA-Public Use
  Company Number: US-JNJFOC-20070804152

PATIENT
  Age: 52 Year
  Sex: Male

DRUGS (8)
  1. ULTRAM [Suspect]
     Indication: CHEST PAIN
     Route: 048
  2. ALTACE [Concomitant]
     Indication: BLOOD PRESSURE
     Route: 048
  3. OXYCODONE HCL [Concomitant]
     Indication: CHEST PAIN
     Route: 048
  4. REQUIP [Concomitant]
     Indication: RESTLESS LEGS SYNDROME
     Route: 048
  5. AMITRIPTYLINE HCL [Concomitant]
     Indication: PAIN
     Route: 048
  6. THYROID TAB [Concomitant]
     Indication: THYROID DISORDER
     Route: 048
  7. METFORMIN HCL [Concomitant]
     Indication: DIABETES MELLITUS
     Route: 048
  8. AVANDIA [Concomitant]
     Indication: DIABETES MELLITUS
     Route: 048

REACTIONS (2)
  - CHEST PAIN [None]
  - DRUG WITHDRAWAL SYNDROME [None]
